FAERS Safety Report 9472727 (Version 1)
Quarter: 2013Q3

REPORT INFORMATION
  Report Type: Spontaneous
  Country: US (occurrence: None)
  Receive Date: 20130821
  Receipt Date: 20130821
  Transmission Date: 20140515
  Serious: Yes (Hospitalization)
  Sender: FDA-Public Use
  Company Number: None

PATIENT
  Age: 68 Year
  Sex: Male
  Weight: 80.4 kg

DRUGS (2)
  1. PIPERACILLIN/TAZOBACTAM [Suspect]
     Indication: INFECTION
     Route: 042
     Dates: start: 20130504, end: 20130506
  2. OMEPRAZOLE [Suspect]
     Indication: GASTRIC ULCER
     Route: 048
     Dates: start: 20120314, end: 20130506

REACTIONS (1)
  - Tubulointerstitial nephritis [None]
